FAERS Safety Report 6600697-1 (Version None)
Quarter: 2010Q1

REPORT INFORMATION
  Report Type: 
  Country: None (occurrence: None)
  Receive Date: 20100223
  Receipt Date: 20100223
  Transmission Date: 20100710
  Serious: Yes (Hospitalization)
  Sender: FDA-Public Use
  Company Number: None

PATIENT
  Age: 75 Year
  Sex: Female
  Weight: 62 kg

DRUGS (7)
  1. AMLODIPINE BESYLATE AND BENAZEPRIL HCL [Suspect]
     Indication: HYPERTENSION
     Dosage: 5/20 DAILY PO APPROXIMATELY 4 MONTHS
     Route: 048
  2. ATORVASTATIN CALCIUM [Concomitant]
  3. METFORMIN HCL [Concomitant]
  4. OMEPRAZOLE [Concomitant]
  5. ATENOLOL [Concomitant]
  6. GLIPIZIDE [Concomitant]
  7. ERGOCALCIFEROL [Concomitant]

REACTIONS (3)
  - ANGIOEDEMA [None]
  - CHEST PAIN [None]
  - DYSPHAGIA [None]
